FAERS Safety Report 5015090-5 (Version None)
Quarter: 2006Q2

REPORT INFORMATION
  Report Type: 
  Country: None (occurrence: None)
  Receive Date: 20060414
  Receipt Date: 20051223
  Transmission Date: 20061013
  Serious: No
  Sender: FDA-Public Use
  Company Number: 2005SP003042

PATIENT
  Age: 61 Year
  Sex: Female
  Weight: 65.318 kg

DRUGS (4)
  1. LUNESTA [Suspect]
     Indication: ARTHRITIS
     Dosage: 1 MG;HS;ORAL
     Route: 048
     Dates: start: 20050915, end: 20050915
  2. LUNESTA [Suspect]
     Indication: INSOMNIA
     Dosage: 1 MG;HS;ORAL
     Route: 048
     Dates: start: 20050915, end: 20050915
  3. VICODIN [Concomitant]
  4. ANTIHYPERTENSIVES [Concomitant]

REACTIONS (1)
  - INSOMNIA [None]
